FAERS Safety Report 7410952-3 (Version None)
Quarter: 2011Q2

REPORT INFORMATION
  Report Type: 
  Country: None (occurrence: None)
  Receive Date: 20110405
  Receipt Date: 20110322
  Transmission Date: 20111010
  Serious: Yes (Death)
  Sender: FDA-Public Use
  Company Number: 2011MA003004

PATIENT
  Age: 53 Year
  Sex: Male

DRUGS (11)
  1. ZOPICLONE [Concomitant]
  2. CHLORDIAZEPOXIDE [Concomitant]
  3. FEVERALL [Suspect]
     Indication: PRODUCT USED FOR UNKNOWN INDICATION
     Dosage: 1 GM;QID;PO
     Route: 048
  4. FEVERALL [Suspect]
     Indication: PRODUCT USED FOR UNKNOWN INDICATION
     Dosage: 1 DF;IV
     Route: 042
  5. ACAMPROSATE [Concomitant]
  6. THIAMINE [Concomitant]
  7. TERLIPRESSIN [Concomitant]
  8. PABRINEX [Concomitant]
  9. TAZOCIN (PIP/TAZO) [Suspect]
     Indication: PRODUCT USED FOR UNKNOWN INDICATION
     Dosage: 4.5 G;TID
  10. ACETAMINOPHEN AND CODEINE PHOSPHATE [Concomitant]
  11. OMEPRAZOLE [Concomitant]

REACTIONS (4)
  - TOXICITY TO VARIOUS AGENTS [None]
  - HYPOTENSION [None]
  - MULTI-ORGAN FAILURE [None]
  - HEPATIC FAILURE [None]
